FAERS Safety Report 8141277-9 (Version None)
Quarter: 2012Q1

REPORT INFORMATION
  Report Type: 
  Country: None (occurrence: None)
  Receive Date: 20120216
  Receipt Date: 20120209
  Transmission Date: 20120608
  Serious: Yes (Hospitalization)
  Sender: FDA-Public Use
  Company Number: DE-ROCHE-1038976

PATIENT
  Sex: Female
  Weight: 95 kg

DRUGS (4)
  1. OXALIPLATIN [Concomitant]
     Indication: RECTAL CANCER METASTATIC
     Route: 042
     Dates: start: 20120206
  2. FLUOROURACIL [Concomitant]
     Indication: RECTAL CANCER METASTATIC
     Route: 042
     Dates: start: 20120206
  3. FOLINIC ACID [Concomitant]
     Indication: RECTAL CANCER METASTATIC
     Route: 042
     Dates: start: 20120206
  4. AVASTIN [Suspect]
     Indication: RECTAL CANCER METASTATIC
     Route: 065

REACTIONS (1)
  - DEVICE MALFUNCTION [None]
